FAERS Safety Report 5509522-3 (Version None)
Quarter: 2007Q4

REPORT INFORMATION
  Report Type: 
  Country: None (occurrence: None)
  Receive Date: 20071107
  Receipt Date: 20071101
  Transmission Date: 20080405
  Serious: Yes (Other)
  Sender: FDA-Public Use
  Company Number: US-PFIZER INC-2007092450

PATIENT
  Sex: Female
  Weight: 68 kg

DRUGS (6)
  1. DETROL LA [Suspect]
     Indication: BLADDER DISORDER
  2. LIPITOR [Concomitant]
  3. LEVOTHYROXINE SODIUM [Concomitant]
  4. FISH OIL [Concomitant]
  5. ALL OTHER THERAPEUTIC PRODUCTS [Concomitant]
  6. VITAMINS [Concomitant]

REACTIONS (1)
  - BLOOD PRESSURE INCREASED [None]
